FAERS Safety Report 24937452 (Version 4)
Quarter: 2025Q4

REPORT INFORMATION
  Report Type: Spontaneous
  Country: JP (occurrence: JP)
  Receive Date: 20250206
  Receipt Date: 20251208
  Transmission Date: 20260118
  Serious: Yes (Death, Hospitalization, Other)
  Sender: BRISTOL-MYERS SQUIBB COMPANY
  Company Number: JP-BRISTOL-MYERS SQUIBB COMPANY-2025-016144

PATIENT
  Age: 77 Year
  Sex: Male
  Weight: 64.5 kg

DRUGS (18)
  1. ABRAXANE [Suspect]
     Active Substance: PACLITAXEL
     Indication: Lung cancer metastatic
     Dosage: ON DAYS 1 AND 8 OF EACH 21-DAY CYCLE, CYCLES 1-3, DAILY 1ST CYCLE?DOSE: 170 MILLIGRAM(S) ?DAILY DOSE: 170 MILLIGRAM(S)
     Route: 041
     Dates: start: 20231018
  2. ABRAXANE [Suspect]
     Active Substance: PACLITAXEL
     Dosage: ON DAYS 1 AND 8 OF EACH 21-DAY CYCLE, CYCLE 4??DAILY DOSE: 136 MILLIGRAM(S)
     Route: 041
     Dates: start: 20240123
  3. ABRAXANE [Suspect]
     Active Substance: PACLITAXEL
     Dosage: ON DAYS 1 AND 8 OF EACH 21-DAY CYCLE, CYCLE 5?DAILY DOSE: 137.6 MILLIGRAM(S)
     Route: 041
     Dates: start: 20240213
  4. ABRAXANE [Suspect]
     Active Substance: PACLITAXEL
     Dosage: ON DAYS 1 AND 8 OF EACH 21-DAY CYCLE, CYCLES 6?DAILY DOSE: 136 MILLIGRAM(S)
     Route: 041
     Dates: start: 20240312
  5. ABRAXANE [Suspect]
     Active Substance: PACLITAXEL
     Dosage: ON DAYS 1 AND 8 OF EACH 21-DAY CYCLE, CYCLE 8?DAILY DOSE: 135.2 MILLIGRAM(S)
     Route: 041
     Dates: start: 20240508
  6. ABRAXANE [Suspect]
     Active Substance: PACLITAXEL
     Dosage: CYCLE 9
     Route: 041
     Dates: start: 20240529, end: 20240612
  7. ABRAXANE [Suspect]
     Active Substance: PACLITAXEL
     Dosage: 2ND CYCLE
     Route: 041
  8. ABRAXANE [Suspect]
     Active Substance: PACLITAXEL
     Dosage: 3RD CYCLE
     Route: 041
  9. ABRAXANE [Suspect]
     Active Substance: PACLITAXEL
     Dosage: 7TH CYCLE
     Route: 041
  10. ABRAXANE [Suspect]
     Active Substance: PACLITAXEL
     Dosage: ABRAXANE WAS ADMINISTERED FOR 9 CYCLES BY THIS DAY.
     Route: 041
  11. AMBROXOL [Concomitant]
     Active Substance: AMBROXOL
     Indication: Product used for unknown indication
     Route: 048
  12. EDOXABAN TOSYLATE [Concomitant]
     Active Substance: EDOXABAN TOSYLATE
     Indication: Product used for unknown indication
     Route: 048
  13. MIYA-BM [Concomitant]
     Active Substance: CLOSTRIDIUM BUTYRICUM SPORES STRAIN M-55
     Indication: Product used for unknown indication
     Route: 048
  14. ROSUVASTATIN OD TOWA [Concomitant]
     Indication: Product used for unknown indication
     Route: 048
  15. BISOPROLOL FUMARATE [Concomitant]
     Active Substance: BISOPROLOL FUMARATE
     Indication: Product used for unknown indication
     Route: 048
  16. ESOMEPRAZOLE [Concomitant]
     Active Substance: ESOMEPRAZOLE
     Indication: Product used for unknown indication
     Route: 048
  17. CIFENLINE [Concomitant]
     Active Substance: CIFENLINE
     Indication: Product used for unknown indication
     Route: 048
  18. FILGRASTIM [Concomitant]
     Active Substance: FILGRASTIM
     Indication: Product used for unknown indication

REACTIONS (9)
  - Myelodysplastic syndrome [Fatal]
  - Neutropenia [Not Recovered/Not Resolved]
  - Febrile neutropenia [Not Recovered/Not Resolved]
  - Malignant neoplasm progression [Fatal]
  - Anaemia [Unknown]
  - Platelet count decreased [Unknown]
  - Respiratory failure [Unknown]
  - Pyrexia [Unknown]
  - Acute respiratory distress syndrome [Unknown]

NARRATIVE: CASE EVENT DATE: 20240716
